FAERS Safety Report 8086130-4 (Version None)
Quarter: 2012Q1

REPORT INFORMATION
  Report Type: 
  Country: None (occurrence: None)
  Receive Date: 20120128
  Receipt Date: 20110426
  Transmission Date: 20120608
  Serious: No
  Sender: FDA-Public Use
  Company Number: US-ABBOTT-11P-163-0721722-00

PATIENT
  Sex: Female
  Weight: 81.72 kg

DRUGS (4)
  1. HUMIRA [Suspect]
     Indication: CROHN'S DISEASE
     Dates: start: 20100301, end: 20101201
  2. ATENOLOL [Concomitant]
     Indication: BASEDOW'S DISEASE
  3. HUMIRA [Suspect]
     Dates: start: 20110101
  4. PROPYLTHIOURACIL [Concomitant]
     Indication: BASEDOW'S DISEASE

REACTIONS (3)
  - FURUNCLE [None]
  - CROHN'S DISEASE [None]
  - DRY SKIN [None]
